FAERS Safety Report 19082765 (Version 1)
Quarter: 2021Q2

REPORT INFORMATION
  Report Type: Spontaneous
  Country: FR (occurrence: FR)
  Receive Date: 20210401
  Receipt Date: 20210401
  Transmission Date: 20210717
  Serious: Yes (Other)
  Sender: FDA-Public Use
  Company Number: FR-SA-2021SA108856

PATIENT
  Age: 68 Year
  Sex: Male

DRUGS (15)
  1. PROPOFOL. [Suspect]
     Active Substance: PROPOFOL
     Indication: SURGERY
     Dosage: 3369 MG, TOTAL
     Route: 042
     Dates: start: 20210305, end: 20210305
  2. PREDNISOLONE. [Suspect]
     Active Substance: PREDNISOLONE
     Indication: INFLAMMATION
     Dosage: 40 MG, QD (2?0?0)
     Route: 048
     Dates: start: 20210313
  3. ONDANSETRON HYDROCHLORIDE. [Suspect]
     Active Substance: ONDANSETRON HYDROCHLORIDE
     Indication: SURGERY
     Dosage: 4 MG, TOTAL
     Route: 042
     Dates: start: 20210305, end: 20210305
  4. NORADRENALINE (NORPINEPHRINE) [Concomitant]
     Active Substance: NOREPINEPHRINE
     Indication: SURGERY
     Dosage: 5 ML, QH
     Route: 065
     Dates: start: 20210305, end: 20210305
  5. TRAMADOL HYDROCHLORIDE. [Concomitant]
     Active Substance: TRAMADOL HYDROCHLORIDE
     Indication: SURGERY
     Dosage: 100 MG, QD
     Route: 042
     Dates: start: 20210305, end: 20210305
  6. CEFAZOLIN SODIUM. [Suspect]
     Active Substance: CEFAZOLIN SODIUM
     Indication: SURGERY
     Dosage: 3 G, TOTAL
     Route: 042
     Dates: start: 20210305, end: 20210305
  7. METHYLPREDNISOLONE. [Suspect]
     Active Substance: METHYLPREDNISOLONE
     Indication: INFLAMMATION
     Dosage: 40 MG, QD
     Route: 042
     Dates: start: 20210309, end: 20210312
  8. PARACETAMOL [Concomitant]
     Active Substance: ACETAMINOPHEN
     Indication: SURGERY
     Dosage: 1 G, PRN
     Route: 042
     Dates: start: 20210305, end: 20210305
  9. LOVENOX [Suspect]
     Active Substance: ENOXAPARIN SODIUM
     Indication: THROMBOSIS PROPHYLAXIS
     Dosage: 4000 IU, QD
     Route: 058
     Dates: start: 20210308
  10. AMOXICILLIN/CLAVULANATE POTASSIUM [Suspect]
     Active Substance: AMOXICILLIN\CLAVULANATE POTASSIUM
     Indication: INFECTION
     Dosage: 3 DF, QD
     Route: 042
     Dates: start: 20210308, end: 20210313
  11. MANNITOL. [Concomitant]
     Active Substance: MANNITOL
     Indication: SURGERY
     Dosage: 300 ML, QD
     Route: 042
     Dates: start: 20210305, end: 20210305
  12. ATRACURIUM [Concomitant]
     Active Substance: ATRACURIUM
     Indication: SURGERY
     Dosage: 175 MG, QD
     Route: 042
     Dates: start: 20210305, end: 20210305
  13. REMIFENTANIL HYDROCHLORIDE. [Concomitant]
     Active Substance: REMIFENTANIL HYDROCHLORIDE
     Indication: SURGERY
     Dosage: 3689 UG, QD
     Route: 042
     Dates: start: 20210305, end: 20210305
  14. EPHEDRINE. [Concomitant]
     Active Substance: EPHEDRINE
     Indication: SURGERY
     Dosage: 12 MG, QD
     Route: 042
     Dates: start: 20210305, end: 20210305
  15. DEXAMETHASONE. [Concomitant]
     Active Substance: DEXAMETHASONE
     Indication: SURGERY
     Dosage: 8 MG, QD
     Route: 042
     Dates: start: 20210305, end: 20210305

REACTIONS (2)
  - Jaundice [Recovering/Resolving]
  - Mixed liver injury [Recovering/Resolving]

NARRATIVE: CASE EVENT DATE: 20210310
